FAERS Safety Report 8003146-4 (Version None)
Quarter: 2011Q4

REPORT INFORMATION
  Report Type: 
  Country: None (occurrence: None)
  Receive Date: 20111222
  Receipt Date: 20111212
  Transmission Date: 20120403
  Serious: Yes (Hospitalization, Other)
  Sender: FDA-Public Use
  Company Number: PHHY2011ES94712

PATIENT
  Age: 42 Year
  Sex: Female

DRUGS (6)
  1. CHEMOTHERAPEUTICS [Concomitant]
     Dosage: UNK UKN, UNK
  2. PREDNISONE TAB [Concomitant]
     Dosage: UNK UKN, UNK
  3. TASIGNA [Suspect]
     Dosage: 200 MG, DAILY
     Route: 048
  4. VINCRISTINE [Concomitant]
     Dosage: UNK UKN, UNK
  5. TASIGNA [Suspect]
     Indication: ACUTE LYMPHOCYTIC LEUKAEMIA
     Dosage: 200 MG, Q48H
     Route: 048
     Dates: start: 20111019
  6. TASIGNA [Suspect]
     Dosage: 200 MG, QD
     Route: 048
     Dates: start: 20111025

REACTIONS (2)
  - POLYNEUROPATHY [None]
  - HEPATIC ENZYME ABNORMAL [None]
